FAERS Safety Report 9659828 (Version 2)
Quarter: 2013Q4

REPORT INFORMATION
  Report Type: Spontaneous
  Country: DE (occurrence: DE)
  Receive Date: 20131031
  Receipt Date: 20131031
  Transmission Date: 20140711
  Serious: Yes (Other)
  Sender: FDA-Public Use
  Company Number: DE-B.I. PHARMACEUTICALS,INC./RIDGEFIELD-2013-BI-30256YA

PATIENT
  Sex: Female

DRUGS (12)
  1. TAMSULOSIN [Suspect]
     Dosage: 0.4 MG
     Route: 065
     Dates: start: 20130703, end: 20130911
  2. TAMSULOSIN [Suspect]
     Dosage: 0.4 MG
     Dates: start: 20130913
  3. TAMSULOSIN [Suspect]
     Dosage: FORMULATION: ORODISPERSIBLE CR TABLET
     Route: 065
     Dates: start: 20130928
  4. TAMSULOSIN [Suspect]
     Dosage: FORMULATION: ORODISPERSIBLE CR TABLET
     Route: 065
     Dates: start: 20130929
  5. TAMSULOSIN [Suspect]
     Dosage: FORMULATION: ORODISPERSIBLE CR TABLET
     Route: 065
     Dates: start: 20130930
  6. TAMSULOSIN [Suspect]
     Dosage: FORMULATION: ORODISPERSIBLE CR TABLET
     Route: 065
     Dates: start: 20130920, end: 20130927
  7. TAMSULOSIN [Suspect]
     Dosage: 0.4 MG
     Route: 065
     Dates: start: 20131002
  8. TAMSULOSIN [Suspect]
     Dosage: 0.4 MG
     Route: 065
     Dates: start: 20131003
  9. TAMSULOSIN [Suspect]
     Dosage: 0.4 MG
     Route: 065
     Dates: start: 20131004
  10. TAMSULOSIN [Suspect]
     Dosage: FORMULATION: ORODISPERSIBLE CR TABLET
     Route: 065
     Dates: start: 20131005
  11. TAMSULOSIN [Suspect]
     Dosage: FORMULATION: ORODISPERSIBLE CR TABLET
     Route: 065
     Dates: start: 20131006
  12. ESTROGEN [Concomitant]
     Dates: start: 20130903

REACTIONS (26)
  - Palpitations [Not Recovered/Not Resolved]
  - Angina pectoris [Not Recovered/Not Resolved]
  - Fatigue [Not Recovered/Not Resolved]
  - Fatigue [Not Recovered/Not Resolved]
  - Back pain [Not Recovered/Not Resolved]
  - Arthralgia [Not Recovered/Not Resolved]
  - Vascular pain [Not Recovered/Not Resolved]
  - Pruritus [Not Recovered/Not Resolved]
  - Lacrimation increased [Not Recovered/Not Resolved]
  - Eye disorder [Not Recovered/Not Resolved]
  - Abdominal pain upper [Not Recovered/Not Resolved]
  - Hyperacusis [Not Recovered/Not Resolved]
  - Dyspepsia [Unknown]
  - Off label use [Unknown]
  - Intentional drug misuse [Unknown]
  - Ear disorder [Not Recovered/Not Resolved]
  - Nasal dryness [Not Recovered/Not Resolved]
  - Eye irritation [Not Recovered/Not Resolved]
  - Oropharyngeal pain [Not Recovered/Not Resolved]
  - Dysphonia [Not Recovered/Not Resolved]
  - Dry skin [Not Recovered/Not Resolved]
  - Night sweats [Not Recovered/Not Resolved]
  - Parosmia [Not Recovered/Not Resolved]
  - Dry mouth [Not Recovered/Not Resolved]
  - Abdominal pain [Not Recovered/Not Resolved]
  - Pain [Not Recovered/Not Resolved]
